FAERS Safety Report 9190343 (Version 1)
Quarter: 2013Q1

REPORT INFORMATION
  Report Type: Spontaneous
  Country: US (occurrence: None)
  Receive Date: 20130325
  Receipt Date: 20130325
  Transmission Date: 20140127
  Serious: Yes (Other)
  Sender: FDA-Public Use
  Company Number: None

PATIENT
  Age: 66 Year
  Sex: Male
  Weight: 90.6 kg

DRUGS (1)
  1. MORPHINE [Suspect]
     Indication: PAIN
     Route: 058
     Dates: start: 20130129, end: 20130130

REACTIONS (4)
  - Burning sensation [None]
  - Presyncope [None]
  - Hypotension [None]
  - Idiosyncratic drug reaction [None]
